FAERS Safety Report 5337129-X (Version None)
Quarter: 2007Q2

REPORT INFORMATION
  Report Type: 
  Country: None (occurrence: None)
  Receive Date: 20070529
  Receipt Date: 20070515
  Transmission Date: 20071010
  Serious: Yes (Congenital Anomaly, Other)
  Sender: FDA-Public Use
  Company Number: GB-ASTRAZENECA-2007GB01024

PATIENT

DRUGS (1)
  1. CARACE [Suspect]
     Route: 064
     Dates: start: 19900706, end: 19900901

REACTIONS (3)
  - MULTIPLE CONGENITAL ABNORMALITIES [None]
  - PREMATURE BABY [None]
  - PULMONARY VALVE STENOSIS [None]
